FAERS Safety Report 10645786 (Version 1)
Quarter: 2014Q4

REPORT INFORMATION
  Report Type: Spontaneous
  Country: CL (occurrence: None)
  Receive Date: 20141209
  Receipt Date: 20141209
  Transmission Date: 20150529
  Serious: Yes (Hospitalization)
  Sender: FDA-Public Use
  Company Number: CL-SEPTODONT-201402353

PATIENT
  Sex: Female

DRUGS (2)
  1. MEPIVACAINE HYDROCHLORIDE. [Suspect]
     Active Substance: MEPIVACAINE HYDROCHLORIDE
     Indication: LOCAL ANAESTHESIA
     Dosage: 1 ML TOTAL DENTAL
     Route: 004
  2. BENZOCAINE 20% [Concomitant]

REACTIONS (14)
  - Ear discomfort [None]
  - Anaesthetic complication [None]
  - Vomiting [None]
  - Wrong technique in drug usage process [None]
  - Syncope [None]
  - Middle ear effusion [None]
  - Vertigo [None]
  - Tinnitus [None]
  - Vestibular disorder [None]
  - Nystagmus [None]
  - Ear pain [None]
  - Balance disorder [None]
  - Discomfort [None]
  - Deafness [None]
